FAERS Safety Report 9026478 (Version 1)
Quarter: 2013Q1

REPORT INFORMATION
  Report Type: Spontaneous
  Country: DK (occurrence: None)
  Receive Date: 20130107
  Receipt Date: 20130107
  Transmission Date: 20140127
  Serious: Yes (Life-Threatening)
  Sender: FDA-Public Use
  Company Number: 2013MA000072

PATIENT
  Age: 67 None
  Sex: Female

DRUGS (7)
  1. ROPINIROLE EXTENDED-RELEASE TABLETS 12MG (ROPINIROLE) [Suspect]
     Route: 048
     Dates: start: 20070629
  2. REQUIP [Suspect]
     Route: 048
  3. MADOPAR [Concomitant]
  4. RASAGILINE [Concomitant]
  5. OXYBUTYNIN [Concomitant]
  6. SELEGILINE [Concomitant]
  7. RASAGILINE [Concomitant]

REACTIONS (3)
  - Disturbance in attention [None]
  - Somnambulism [None]
  - Road traffic accident [None]
